FAERS Safety Report 22722147 (Version 2)
Quarter: 2025Q4

REPORT INFORMATION
  Report Type: Report from Study
  Country: US (occurrence: US)
  Receive Date: 20230719
  Receipt Date: 20251021
  Transmission Date: 20260118
  Serious: Yes (Hospitalization)
  Sender: AMGEN
  Company Number: US-AMGEN-USASP2023123790

PATIENT
  Age: 48 Year
  Sex: Male

DRUGS (1)
  1. TAVNEOS [Suspect]
     Active Substance: AVACOPAN
     Indication: Granulomatosis with polyangiitis
     Dosage: UNK
     Route: 065
     Dates: start: 20220223

REACTIONS (2)
  - Hospitalisation [Unknown]
  - Hospitalisation [Unknown]
